FAERS Safety Report 25169069 (Version 1)
Quarter: 2025Q2

REPORT INFORMATION
  Report Type: Spontaneous
  Country: US (occurrence: None)
  Receive Date: 20250407
  Receipt Date: 20250407
  Transmission Date: 20250716
  Serious: No
  Sender: FDA-CTU
  Company Number: None

PATIENT
  Sex: Female

DRUGS (1)
  1. TADALAFIL [Suspect]
     Active Substance: TADALAFIL
     Indication: Product used for unknown indication
     Dosage: 20 MG DAILY ORAL ?
     Route: 048
     Dates: start: 20250321

REACTIONS (6)
  - Fall [None]
  - Rib fracture [None]
  - Abdominal discomfort [None]
  - Diarrhoea [None]
  - Constipation [None]
  - Inspiratory capacity decreased [None]
